FAERS Safety Report 14986655 (Version 2)
Quarter: 2018Q2

REPORT INFORMATION
  Report Type: Report from Study
  Country: IT (occurrence: IT)
  Receive Date: 20180608
  Receipt Date: 20180615
  Transmission Date: 20180711
  Serious: Yes (Hospitalization)
  Sender: FDA-Public Use
  Company Number: IT-BRISTOL-MYERS SQUIBB COMPANY-BMS-2018-042166

PATIENT
  Age: 67 Year
  Sex: Male

DRUGS (8)
  1. NIVOLUMAB [Suspect]
     Active Substance: NIVOLUMAB
     Indication: METASTATIC MALIGNANT MELANOMA
     Dosage: 88 MG, UNK
     Route: 042
     Dates: start: 20180108, end: 20180312
  2. NIVOLUMAB [Suspect]
     Active Substance: NIVOLUMAB
     Indication: BRAF GENE MUTATION
     Dosage: 264 MG, UNK
     Route: 042
     Dates: start: 20180403
  3. ENCORAFENIB [Suspect]
     Active Substance: ENCORAFENIB
     Indication: BRAF GENE MUTATION
     Route: 065
  4. BINIMETINIB [Suspect]
     Active Substance: BINIMETINIB
     Indication: BRAF GENE MUTATION
     Route: 065
  5. IPILIMUMAB [Suspect]
     Active Substance: IPILIMUMAB
     Indication: METASTATIC MALIGNANT MELANOMA
     Dosage: 264 MG, UNK
     Route: 042
     Dates: start: 20180108, end: 20180312
  6. IPILIMUMAB [Suspect]
     Active Substance: IPILIMUMAB
     Indication: BRAF GENE MUTATION
     Route: 065
  7. ENCORAFENIB [Suspect]
     Active Substance: ENCORAFENIB
     Indication: METASTATIC MALIGNANT MELANOMA
     Dosage: 450 MG, UNK
     Route: 048
     Dates: start: 20171023, end: 20171120
  8. BINIMETINIB [Suspect]
     Active Substance: BINIMETINIB
     Indication: METASTATIC MALIGNANT MELANOMA
     Dosage: 90 MG, UNK
     Route: 048
     Dates: start: 20171023, end: 20171120

REACTIONS (3)
  - Dyspnoea [Recovered/Resolved]
  - Pyrexia [Recovered/Resolved]
  - Pneumonitis [Recovered/Resolved]

NARRATIVE: CASE EVENT DATE: 20180506
